FAERS Safety Report 15074961 (Version 2)
Quarter: 2023Q4

REPORT INFORMATION
  Report Type: Spontaneous
  Country: US (occurrence: US)
  Receive Date: 20180627
  Receipt Date: 20231128
  Transmission Date: 20240109
  Serious: No
  Sender: FDA-Public Use
  Company Number: US-SAOL THERAPEUTICS-2017SAO01814

PATIENT
  Age: 57 Year
  Sex: Female

DRUGS (7)
  1. BACLOFEN [Suspect]
     Active Substance: BACLOFEN
     Dosage: 12.673 ?G, \DAY
     Route: 037
     Dates: end: 20171103
  2. SUFENTANIL [Suspect]
     Active Substance: SUFENTANIL
     Dosage: 492.83 ?G, \DAY
     Route: 037
     Dates: end: 20171103
  3. SUFENTANIL [Suspect]
     Active Substance: SUFENTANIL
     Dosage: 349.75 ?G, \DAY
     Route: 037
     Dates: start: 20171103
  4. CLONIDINE [Suspect]
     Active Substance: CLONIDINE
     Dosage: 48.579 ?G, \DAY
     Route: 037
     Dates: end: 20171103
  5. CLONIDINE [Suspect]
     Active Substance: CLONIDINE
     Dosage: 34.476 ?G, \DAY
     Route: 037
     Dates: start: 20171103
  6. BUPIVACAINE [Suspect]
     Active Substance: BUPIVACAINE
     Dosage: 21.121 MG, \DAY
     Route: 037
     Dates: end: 20171103
  7. BUPIVACAINE [Suspect]
     Active Substance: BUPIVACAINE
     Dosage: 14.989 MG, \DAY
     Route: 037
     Dates: start: 20171103

REACTIONS (1)
  - Granuloma [Not Recovered/Not Resolved]

NARRATIVE: CASE EVENT DATE: 20171102
